FAERS Safety Report 7865445-6 (Version None)
Quarter: 2011Q4

REPORT INFORMATION
  Report Type: 
  Country: None (occurrence: None)
  Receive Date: 20111028
  Receipt Date: 20101229
  Transmission Date: 20120403
  Serious: No
  Sender: FDA-Public Use
  Company Number: US-GLAXOSMITHKLINE-A0902033A

PATIENT
  Age: 54 Year
  Sex: Female

DRUGS (12)
  1. EFFEXOR XR [Concomitant]
  2. MIRALAX [Concomitant]
  3. ALBUTEROL [Concomitant]
  4. METAMUCIL-2 [Concomitant]
  5. ADVAIR DISKUS 100/50 [Suspect]
     Indication: ASTHMA
     Dosage: 1PUFF TWICE PER DAY
     Route: 055
     Dates: start: 19980101, end: 20101225
  6. TRAZODONE HYDROCHLORIDE [Concomitant]
  7. IBUPROFEN [Concomitant]
  8. XANAX [Concomitant]
  9. FLONASE [Concomitant]
  10. ATROVENT [Concomitant]
  11. FLOVENT [Suspect]
     Indication: ASTHMA
     Dosage: 2PUFF TWICE PER DAY
     Route: 055
     Dates: start: 20101226
  12. SODIUM CHLORIDE INJ [Concomitant]

REACTIONS (3)
  - PALPITATIONS [None]
  - ASTHENIA [None]
  - DYSPNOEA [None]
